FAERS Safety Report 9875646 (Version 1)
Quarter: 2014Q1

REPORT INFORMATION
  Report Type: Spontaneous
  Country: US (occurrence: None)
  Receive Date: 20140205
  Receipt Date: 20140205
  Transmission Date: 20141002
  Serious: No
  Sender: FDA-Public Use
  Company Number: None

PATIENT
  Age: 37 Year
  Sex: Male
  Weight: 74.39 kg

DRUGS (3)
  1. MAXITROL [Suspect]
     Indication: THERAPEUTIC RESPONSE DECREASED
     Dosage: SINGLE APPLICATION?QHS/BEDTIME?OPHTHALMIC
     Route: 047
     Dates: start: 20140131, end: 20140201
  2. IBUPROFEN [Concomitant]
  3. CYCLOBENZAPRINE [Suspect]

REACTIONS (1)
  - Eye irritation [None]
